FAERS Safety Report 6231737-X (Version None)
Quarter: 2009Q2

REPORT INFORMATION
  Report Type: 
  Country: None (occurrence: None)
  Receive Date: 20090616
  Receipt Date: 20090604
  Transmission Date: 20091009
  Serious: Yes (Disabling, Other)
  Sender: FDA-Public Use
  Company Number: GB-PFIZER INC-2009213601

PATIENT
  Age: 57 Year

DRUGS (3)
  1. CHAMPIX [Suspect]
     Dosage: 500 UG, UNK
     Route: 048
     Dates: start: 20090101, end: 20090513
  2. LEVOTHYROXINE [Concomitant]
     Dosage: 125 UG, UNK
     Route: 048
     Dates: start: 19930101
  3. MOMETASONE [Concomitant]
     Indication: RHINITIS
     Dosage: 50 UG, UNK
     Route: 055
     Dates: start: 20090508

REACTIONS (11)
  - ABDOMINAL PAIN [None]
  - AGITATION [None]
  - ANXIETY [None]
  - DEPRESSIVE SYMPTOM [None]
  - DIARRHOEA [None]
  - HYPERHIDROSIS [None]
  - MIDDLE INSOMNIA [None]
  - NAUSEA [None]
  - NERVOUSNESS [None]
  - PALPITATIONS [None]
  - RESTLESSNESS [None]
